FAERS Safety Report 24171575 (Version 1)
Quarter: 2024Q3

REPORT INFORMATION
  Report Type: Spontaneous
  Country: CA (occurrence: CA)
  Receive Date: 20240805
  Receipt Date: 20240805
  Transmission Date: 20241016
  Serious: Yes (Life-Threatening, Hospitalization)
  Sender: HLS THERAPEUTICS
  Company Number: CA-HLS-202401813

PATIENT
  Age: 41 Year
  Sex: Female

DRUGS (8)
  1. ARIPIPRAZOLE [Concomitant]
     Active Substance: ARIPIPRAZOLE
     Dosage: NOT SPECIFIED DOSAGE FORM
     Route: 065
  2. CLOBAZAM [Concomitant]
     Active Substance: CLOBAZAM
     Dosage: TABLETS DOSAGE FORM
     Route: 065
  3. CLOZAPINE [Suspect]
     Active Substance: CLOZAPINE
     Dosage: TABLETS DOSAGE FORM?THERAPY DURATION: 62 DAYS
     Route: 065
  4. DIMENHYDRINATE [Concomitant]
     Active Substance: DIMENHYDRINATE
     Dosage: NOT SPECIFIED DOSAGE FORM
     Route: 065
  5. METFORMIN [Concomitant]
     Active Substance: METFORMIN HYDROCHLORIDE
     Dosage: TABLETS DOSAGE FORM
     Route: 065
  6. MINOCYCLINE [Concomitant]
     Active Substance: MINOCYCLINE HYDROCHLORIDE
     Dosage: NOT SPECIFIED DOSAGE FORM
     Route: 065
  7. ROSUVASTATIN [Concomitant]
     Active Substance: ROSUVASTATIN\ROSUVASTATIN CALCIUM
     Dosage: TABLETS DOSAGE FORM
     Route: 065
  8. VALPROIC ACID [Concomitant]
     Active Substance: VALPROIC ACID
     Dosage: NOT SPECIFIED DOSAGE FORM
     Route: 065

REACTIONS (5)
  - Acute kidney injury [Recovering/Resolving]
  - Antipsychotic drug level increased [Recovering/Resolving]
  - Drug interaction [Recovering/Resolving]
  - Myocarditis [Recovering/Resolving]
  - Rhabdomyolysis [Recovering/Resolving]
